FAERS Safety Report 8471130 (Version 2)
Quarter: 2012Q4

REPORT INFORMATION
  Report Type: 
  Country: US (occurrence: US)
  Receive Date: 20120322
  Receipt Date: 20121022
  Transmission Date: 20130627
  Serious: Yes (Hospitalization)
  Sender: FDA-Public Use
  Company Number: US-BAYER-2012-024472

PATIENT
  Age: 18 Year
  Sex: Female
  Weight: 61.68 kg

DRUGS (2)
  1. YAZ [Suspect]
     Dosage: UNK
     Dates: start: 200501, end: 201101
  2. YASMIN [Suspect]
     Dosage: UNK
     Dates: start: 200501, end: 201101

REACTIONS (6)
  - Cholecystectomy [None]
  - Pain [None]
  - General physical health deterioration [None]
  - Emotional distress [None]
  - Anxiety [None]
  - Anhedonia [None]
